FAERS Safety Report 5309520-9 (Version None)
Quarter: 2007Q2

REPORT INFORMATION
  Report Type: 
  Country: None (occurrence: None)
  Receive Date: 20070427
  Receipt Date: 20060524
  Transmission Date: 20071010
  Serious: No
  Sender: FDA-Public Use
  Company Number: US-GLAXOSMITHKLINE-A0604386A

PATIENT
  Age: 53 Year
  Sex: Female

DRUGS (2)
  1. DEXEDRINE [Suspect]
     Indication: DRUG USE FOR UNKNOWN INDICATION
     Dosage: 5MG FOUR TIMES PER DAY
     Route: 048
     Dates: start: 20060427
  2. XANAX [Concomitant]

REACTIONS (3)
  - DIZZINESS [None]
  - PHARMACEUTICAL PRODUCT COMPLAINT [None]
  - UPPER RESPIRATORY TRACT CONGESTION [None]
